FAERS Safety Report 12408048 (Version 2)
Quarter: 2016Q3

REPORT INFORMATION
  Report Type: Other
  Country: US (occurrence: US)
  Receive Date: 20160526
  Receipt Date: 20160908
  Transmission Date: 20161109
  Serious: Yes (Disabling, Other)
  Sender: FDA-Public Use
  Company Number: US-ACORDA-ACO_124276_2016

PATIENT
  Sex: Male

DRUGS (1)
  1. AMPYRA [Suspect]
     Active Substance: DALFAMPRIDINE
     Indication: MULTIPLE SCLEROSIS
     Dosage: 10 MG, BID
     Route: 048

REACTIONS (9)
  - Amnesia [Unknown]
  - Gait disturbance [Unknown]
  - Glaucoma [Unknown]
  - Wheelchair user [Unknown]
  - Glucose tolerance impaired [Unknown]
  - Abasia [Recovering/Resolving]
  - Walking aid user [Unknown]
  - Pain [Unknown]
  - Pain in extremity [Unknown]
